FAERS Safety Report 5578410-9 (Version None)
Quarter: 2007Q4

REPORT INFORMATION
  Report Type: 
  Country: None (occurrence: None)
  Receive Date: 20071231
  Receipt Date: 20071219
  Transmission Date: 20080405
  Serious: Yes (Other)
  Sender: FDA-Public Use
  Company Number: US-PFIZER INC-2007106630

PATIENT
  Sex: Female
  Weight: 63.5 kg

DRUGS (4)
  1. DILANTIN [Suspect]
     Indication: CONVULSION
     Dosage: TEXT:300MG ALTERNATING WITH 200MG-FREQ:EVERY OTHER DAY
  2. PHENYTOIN [Suspect]
     Indication: CONVULSION
     Dosage: TEXT:300MG ALTERNATING WITH 200MG-FREQ:EVERY OTHER DAY
     Dates: start: 20060101, end: 20060101
  3. FOSAMAX [Suspect]
     Indication: OSTEOPOROSIS
  4. PHENOBARBITAL TAB [Concomitant]

REACTIONS (4)
  - BONE EROSION [None]
  - CONVULSION [None]
  - DIZZINESS [None]
  - OSTEOPOROSIS [None]
